FAERS Safety Report 17938411 (Version 1)
Quarter: 2020Q2

REPORT INFORMATION
  Report Type: Spontaneous
  Country: NO (occurrence: NO)
  Receive Date: 20200624
  Receipt Date: 20200624
  Transmission Date: 20200714
  Serious: Yes (Other)
  Sender: FDA-Public Use
  Company Number: NO-BAYER-2020-119207

PATIENT
  Sex: Female

DRUGS (2)
  1. DICLOCIL [Suspect]
     Active Substance: DICLOXACILLIN SODIUM
  2. MIRENA [Suspect]
     Active Substance: LEVONORGESTREL
     Dosage: 20 ?G PER DAY CONTINUOUSLY
     Route: 015

REACTIONS (4)
  - Off label use of device [None]
  - Hepatitis cholestatic [Recovering/Resolving]
  - Liver function test increased [Recovering/Resolving]
  - Device use issue [None]
